FAERS Safety Report 4984243-4 (Version None)
Quarter: 2006Q2

REPORT INFORMATION
  Report Type: 
  Country: None (occurrence: None)
  Receive Date: 20060420
  Receipt Date: 20060404
  Transmission Date: 20061013
  Serious: Yes (Hospitalization)
  Sender: FDA-Public Use
  Company Number: 2006AD00026

PATIENT
  Age: 51 Year
  Sex: Female

DRUGS (2)
  1. CEPHALEXIN [Suspect]
     Indication: STREPTOCOCCAL INFECTION
  2. AUGMENTIN '125' [Suspect]
     Indication: STREPTOCOCCAL INFECTION

REACTIONS (3)
  - DRUG INEFFECTIVE [None]
  - MALAISE [None]
  - SUBDIAPHRAGMATIC ABSCESS [None]
